FAERS Safety Report 8731855 (Version 3)
Quarter: 2012Q4

REPORT INFORMATION
  Report Type: 
  Country: US (occurrence: US)
  Receive Date: 20120820
  Receipt Date: 20121025
  Transmission Date: 20130627
  Serious: Yes (Other)
  Sender: FDA-Public Use
  Company Number: US-US-EMD SERONO, INC.-7154544

PATIENT
  Age: 62 None
  Sex: Female

DRUGS (4)
  1. REBIF [Suspect]
     Indication: MULTIPLE SCLEROSIS
     Route: 058
     Dates: start: 20110509
  2. IMURAN [Concomitant]
     Indication: CYSTITIS INTERSTITIAL
  3. UNSPECIFIED CARDIAC MEDICATIONS [Concomitant]
     Indication: ARRHYTHMIA
  4. UNSPECIFIED CARDIAC MEDICATIONS [Concomitant]
     Indication: VENTRICULAR EXTRASYSTOLES

REACTIONS (10)
  - Cardiomegaly [Unknown]
  - Tympanic membrane perforation [Unknown]
  - Eustachian tube dysfunction [Unknown]
  - Ovarian cyst [Not Recovered/Not Resolved]
  - Optic neuritis [Unknown]
  - Immunoglobulins decreased [Unknown]
  - Vertigo [Unknown]
  - Fall [Unknown]
  - Skin injury [Unknown]
  - Muscle spasticity [Unknown]
